FAERS Safety Report 5174339-9 (Version None)
Quarter: 2006Q4

REPORT INFORMATION
  Report Type: 
  Country: None (occurrence: None)
  Receive Date: 20061214
  Receipt Date: 20060509
  Transmission Date: 20070319
  Serious: Yes (Other)
  Sender: FDA-Public Use
  Company Number: US-ELI_LILLY_AND_COMPANY-US200609001580

PATIENT
  Age: 41 Year
  Sex: Female
  Weight: 90.702 kg

DRUGS (3)
  1. QUETIAPINE FUMARATE [Concomitant]
     Dates: start: 19940101, end: 20060101
  2. TRIAMCINOLONE [Concomitant]
     Dates: start: 19980101
  3. ZYPREXA [Suspect]
     Indication: DEPRESSION
     Route: 065

REACTIONS (3)
  - HEPATITIS VIRAL [None]
  - HYPERGLYCAEMIA [None]
  - METABOLIC DISORDER [None]
